FAERS Safety Report 20670336 (Version 1)
Quarter: 2022Q2

REPORT INFORMATION
  Report Type: Spontaneous
  Country: FR (occurrence: FR)
  Receive Date: 20220404
  Receipt Date: 20220404
  Transmission Date: 20220721
  Serious: Yes (Hospitalization)
  Sender: FDA-Public Use
  Company Number: None

PATIENT
  Age: 32 Year
  Sex: Male

DRUGS (9)
  1. ZOPICLONE [Suspect]
     Active Substance: ZOPICLONE
     Indication: Product used for unknown indication
     Dosage: UNK (NOT KNOWN)
     Route: 048
     Dates: end: 20210325
  2. ESCITALOPRAM [Suspect]
     Active Substance: ESCITALOPRAM OXALATE
     Indication: Product used for unknown indication
     Dosage: UNK
     Route: 065
  3. CANNABIS SATIVA SUBSP. INDICA TOP [Suspect]
     Active Substance: CANNABIS SATIVA SUBSP. INDICA TOP
     Indication: Product used for unknown indication
     Dosage: UNK, 3 TO 4 JOINTS PER MONTH
     Route: 055
  4. METHADONE [Suspect]
     Active Substance: METHADONE HYDROCHLORIDE
     Indication: Product used for unknown indication
     Dosage: UNK (NON RENSEIGNEE)
     Route: 048
  5. COCAINE [Suspect]
     Active Substance: COCAINE
     Indication: Product used for unknown indication
     Dosage: 3 TO 4 TIMES A YEAR
     Route: 065
  6. ALCOHOL [Suspect]
     Active Substance: ALCOHOL
     Indication: Product used for unknown indication
     Dosage: UNK, QD, 60 STANDARD UNITS PER DAY
     Route: 048
     Dates: end: 20210325
  7. HEROIN [Suspect]
     Active Substance: DIAMORPHINE
     Indication: Product used for unknown indication
     Dosage: 2 GRAM, QD
     Route: 045
     Dates: start: 202007
  8. HEROIN [Suspect]
     Active Substance: DIAMORPHINE
     Dosage: 2 GRAM, QD
     Route: 055
     Dates: start: 202007
  9. BROMAZEPAM [Suspect]
     Active Substance: BROMAZEPAM
     Indication: Product used for unknown indication
     Dosage: 6 MILLIGRAM, QD
     Route: 048
     Dates: start: 20210325, end: 20210325

REACTIONS (6)
  - Hepatic enzyme increased [Not Recovered/Not Resolved]
  - Behavioural addiction [Not Recovered/Not Resolved]
  - Lipids abnormal [Unknown]
  - Folate deficiency [Unknown]
  - Withdrawal syndrome [Not Recovered/Not Resolved]
  - Drug abuse [Not Recovered/Not Resolved]

NARRATIVE: CASE EVENT DATE: 20210304
